FAERS Safety Report 6041895-8 (Version None)
Quarter: 2009Q1

REPORT INFORMATION
  Report Type: 
  Country: None (occurrence: None)
  Receive Date: 20090116
  Receipt Date: 20090112
  Transmission Date: 20090719
  Serious: Yes (Hospitalization)
  Sender: FDA-Public Use
  Company Number: DE-ABBOTT-08P-062-0493715-00

PATIENT
  Sex: Male
  Weight: 110 kg

DRUGS (10)
  1. HUMIRA [Suspect]
     Indication: RHEUMATOID ARTHRITIS
     Route: 058
     Dates: start: 20080625, end: 20080922
  2. HUMIRA [Suspect]
     Route: 058
     Dates: start: 20081001
  3. CORTISONE ACETATE TAB [Concomitant]
     Indication: RHEUMATOID ARTHRITIS
     Route: 065
  4. LEFLUNOMIDE [Concomitant]
     Indication: RHEUMATOID ARTHRITIS
     Route: 048
  5. ARAVA [Concomitant]
     Indication: RHEUMATOID ARTHRITIS
  6. PREDNISOLONE [Concomitant]
     Indication: RHEUMATOID ARTHRITIS
  7. VOLTAREN [Concomitant]
     Indication: PAIN
  8. OMEPRAZOLE [Concomitant]
     Indication: PROPHYLAXIS AGAINST GASTROINTESTINAL ULCER
  9. BISOPROLOL PLUS [Concomitant]
     Indication: HYPERTENSION
  10. EXFORGE [Concomitant]
     Indication: HYPERTENSION

REACTIONS (1)
  - KNEE ARTHROPLASTY [None]
